FAERS Safety Report 6334485-0 (Version None)
Quarter: 2009Q3

REPORT INFORMATION
  Report Type: 
  Country: None (occurrence: None)
  Receive Date: 20090827
  Receipt Date: 20090818
  Transmission Date: 20100115
  Serious: Yes (Hospitalization)
  Sender: FDA-Public Use
  Company Number: 2009AL005443

PATIENT
  Age: 17 Year
  Sex: Female

DRUGS (3)
  1. IBUPROFEN [Suspect]
     Indication: DYSMENORRHOEA
  2. ALPRAZOLAM [Suspect]
     Indication: ANXIETY
  3. ESCITALOPRAM [Concomitant]

REACTIONS (10)
  - ABDOMINAL PAIN [None]
  - ANAEMIA [None]
  - DIARRHOEA [None]
  - EOSINOPHILIA [None]
  - FAECES DISCOLOURED [None]
  - LEUKOCYTURIA [None]
  - NAUSEA [None]
  - NEPHRITIS ALLERGIC [None]
  - RENAL FAILURE [None]
  - VOMITING [None]
